FAERS Safety Report 9410945 (Version 1)
Quarter: 2013Q3

REPORT INFORMATION
  Report Type: Spontaneous
  Country: IL (occurrence: IL)
  Receive Date: 20130719
  Receipt Date: 20130719
  Transmission Date: 20140515
  Serious: Yes (Other)
  Sender: FDA-Public Use
  Company Number: IL-BAXTER-2013BAX028635

PATIENT
  Sex: 0

DRUGS (2)
  1. ENDOXAN-1G [Suspect]
     Indication: CONGENITAL APLASTIC ANAEMIA
  2. FLUDARABINE [Suspect]
     Indication: CONGENITAL APLASTIC ANAEMIA

REACTIONS (1)
  - Venoocclusive disease [Unknown]
